FAERS Safety Report 5664488-0 (Version None)
Quarter: 2008Q1

REPORT INFORMATION
  Report Type: 
  Country: None (occurrence: None)
  Receive Date: 20080314
  Receipt Date: 20080303
  Transmission Date: 20080703
  Serious: Yes (Hospitalization)
  Sender: FDA-Public Use
  Company Number: B0505603B

PATIENT
  Age: 40 Year
  Sex: Female

DRUGS (4)
  1. TYKERB [Suspect]
     Indication: BREAST CANCER METASTATIC
     Dosage: 1250MG PER DAY
     Route: 048
     Dates: end: 20080303
  2. CAPECITABINE [Suspect]
     Indication: BREAST CANCER METASTATIC
     Dosage: 1800MGM2 CYCLIC
     Route: 048
  3. LYRICA [Concomitant]
     Dates: end: 20080303
  4. MORPHINE [Concomitant]
     Dates: end: 20080303

REACTIONS (6)
  - CONFUSIONAL STATE [None]
  - EJECTION FRACTION ABNORMAL [None]
  - HEPATIC ENCEPHALOPATHY [None]
  - JAUNDICE [None]
  - PALMAR-PLANTAR ERYTHRODYSAESTHESIA SYNDROME [None]
  - THROMBOCYTOPENIA [None]
